FAERS Safety Report 14603738 (Version 2)
Quarter: 2018Q2

REPORT INFORMATION
  Report Type: Spontaneous
  Country: US (occurrence: US)
  Receive Date: 20180306
  Receipt Date: 20180424
  Transmission Date: 20180711
  Serious: Yes (Death, Other)
  Sender: FDA-Public Use
  Company Number: US-GLAXOSMITHKLINE-US2018037443

PATIENT
  Sex: Male

DRUGS (3)
  1. SYMBICORT [Concomitant]
     Active Substance: BUDESONIDE\FORMOTEROL FUMARATE DIHYDRATE
  2. NUCALA [Suspect]
     Active Substance: MEPOLIZUMAB
     Indication: LUNG DISORDER
     Dosage: UNK
     Route: 058
     Dates: start: 2017, end: 2017
  3. NUCALA [Suspect]
     Active Substance: MEPOLIZUMAB
     Indication: DYSPNOEA

REACTIONS (3)
  - Product use in unapproved indication [Recovered/Resolved]
  - Ill-defined disorder [Unknown]
  - Death [Fatal]

NARRATIVE: CASE EVENT DATE: 2017
